FAERS Safety Report 6370683-8 (Version None)
Quarter: 2009Q3

REPORT INFORMATION
  Report Type: 
  Country: None (occurrence: None)
  Receive Date: 20090923
  Receipt Date: 20070523
  Transmission Date: 20100115
  Serious: Yes (Other)
  Sender: FDA-Public Use
  Company Number: US-ASTRAZENECA-2006UW26115

PATIENT
  Age: 21144 Day
  Sex: Male
  Weight: 116.1 kg

DRUGS (35)
  1. SEROQUEL [Suspect]
     Indication: DEPRESSION
     Route: 048
     Dates: start: 19970101, end: 20060101
  2. SEROQUEL [Suspect]
     Indication: SCHIZOPHRENIA
     Route: 048
     Dates: start: 19970101, end: 20060101
  3. SEROQUEL [Suspect]
     Indication: PARANOIA
     Route: 048
     Dates: start: 19970101, end: 20060101
  4. SEROQUEL [Suspect]
     Dosage: 100-300 MG
     Route: 048
     Dates: start: 20011009
  5. SEROQUEL [Suspect]
     Dosage: 100-300 MG
     Route: 048
     Dates: start: 20011009
  6. SEROQUEL [Suspect]
     Dosage: 100-300 MG
     Route: 048
     Dates: start: 20011009
  7. GEODON [Concomitant]
  8. TAGAMET [Concomitant]
     Indication: ULCER
     Dosage: 50 MG, 300 MG FOUR TIMES A DAY
     Dates: start: 19811127
  9. VICODIN [Concomitant]
     Indication: PAIN
     Dosage: 5/500 MG
     Route: 048
     Dates: start: 19950106
  10. PROZAC [Concomitant]
     Indication: DEPRESSION
     Route: 048
     Dates: start: 19960709
  11. RISPERDAL [Concomitant]
     Dosage: 3-6 MG
     Route: 048
     Dates: start: 19960926
  12. RESTORIL [Concomitant]
     Indication: RESTLESSNESS
     Dosage: 15-30 MG, AS NEEDED
     Route: 048
     Dates: start: 19950925, end: 20000518
  13. RESTORIL [Concomitant]
     Indication: SLEEP DISORDER
     Dosage: 15-30 MG, AS NEEDED
     Route: 048
     Dates: start: 19950925, end: 20000518
  14. RESTORIL [Concomitant]
     Indication: INSOMNIA
     Dosage: 15-30 MG, AS NEEDED
     Route: 048
     Dates: start: 19950925, end: 20000518
  15. ZANTAC [Concomitant]
     Indication: PEPTIC ULCER
     Route: 048
     Dates: start: 19960926
  16. ZANTAC [Concomitant]
     Indication: ABDOMINAL PAIN UPPER
     Route: 048
     Dates: start: 19960926
  17. ZANTAC [Concomitant]
     Route: 048
     Dates: start: 19960926
  18. MILK OF MAGNESIA TAB [Concomitant]
     Indication: CONSTIPATION
     Route: 048
     Dates: start: 19950925
  19. VALIUM [Concomitant]
     Indication: MUSCLE SPASMS
     Route: 048
     Dates: start: 19950920
  20. NASACORT [Concomitant]
     Dosage: 55 MCG/ACT, 1 PUFF AT NIGHT
     Dates: start: 20000528
  21. FLOVENT [Concomitant]
     Dosage: 44 MCG/ACT, 2 PUFFS TWO TIMES A DAY
     Dates: start: 20000920
  22. ASPIRIN [Concomitant]
     Dosage: 325-650 MG
     Route: 048
     Dates: start: 19970613
  23. PAXIL [Concomitant]
     Dosage: 20-40 MG
     Route: 048
     Dates: start: 20000614
  24. PREVACID [Concomitant]
     Route: 048
     Dates: start: 20000614
  25. ZYPREXA [Concomitant]
     Route: 048
     Dates: start: 19971204
  26. XANAX [Concomitant]
     Dates: start: 19971024
  27. PHENTERMINE HYDROCHLORIDE [Concomitant]
     Dates: start: 20000118
  28. PEPCID AC [Concomitant]
     Indication: GASTROINTESTINAL DISORDER
     Dosage: 10-40 MG
     Route: 048
     Dates: start: 19971024
  29. DESYREL [Concomitant]
     Dosage: 50-100 MG
     Dates: start: 19950626, end: 20000518
  30. VANCENASE AQ [Concomitant]
     Dates: start: 20000920
  31. ROBITUSSIN DM [Concomitant]
     Dates: start: 20010410
  32. TRILAFON [Concomitant]
     Dates: start: 19950626
  33. COGENTIN [Concomitant]
     Dosage: 1-2 MG, AS NEEDED
     Route: 048
     Dates: start: 19950626
  34. MYLANTA [Concomitant]
     Route: 048
     Dates: start: 19970813
  35. COLACE [Concomitant]
     Dosage: TWO TIMES A DAY
     Dates: start: 20000920

REACTIONS (2)
  - DIABETES MELLITUS [None]
  - TYPE 2 DIABETES MELLITUS [None]
